FAERS Safety Report 15917278 (Version 1)
Quarter: 2019Q1

REPORT INFORMATION
  Report Type: Spontaneous
  Country: US (occurrence: US)
  Receive Date: 20190205
  Receipt Date: 20190205
  Transmission Date: 20190417
  Serious: Yes (Other)
  Sender: FDA-Public Use
  Company Number: None

PATIENT
  Age: 58 Year
  Sex: Female
  Weight: 101.7 kg

DRUGS (2)
  1. PACLITAXEL. [Suspect]
     Active Substance: PACLITAXEL
     Indication: BREAST CANCER
     Dosage: ?          OTHER FREQUENCY:EVERY WEEK;?
     Route: 041
     Dates: start: 20190118, end: 20190118
  2. HERCEPTIN [Concomitant]
     Active Substance: TRASTUZUMAB
     Dates: start: 20190118, end: 20190118

REACTIONS (4)
  - Dyspnoea [None]
  - Paraesthesia oral [None]
  - Flushing [None]
  - Hyperhidrosis [None]

NARRATIVE: CASE EVENT DATE: 20190118
